FAERS Safety Report 19606031 (Version 1)
Quarter: 2021Q3

REPORT INFORMATION
  Report Type: Report from Study
  Country: None (occurrence: ES)
  Receive Date: 20210723
  Receipt Date: 20210723
  Transmission Date: 20211014
  Serious: Yes (Hospitalization)
  Sender: FDA-Public Use
  Company Number: ES-ABBVIE-21K-144-4003453-00

PATIENT
  Age: 79 Year
  Sex: Male

DRUGS (6)
  1. HIDRALAZINA [Concomitant]
     Indication: HYPERTENSION
     Dosage: (1720CH)?HIDROCLORURO
     Route: 048
     Dates: start: 20200323, end: 20200402
  2. AMOXICILINA + ACIDO CLAVULONICO [Concomitant]
     Active Substance: AMOXICILLIN\CLAVULANATE POTASSIUM
     Indication: PRODUCT USED FOR UNKNOWN INDICATION
     Route: 042
     Dates: start: 20200323, end: 20200328
  3. TAMSULOSINA [Concomitant]
     Active Substance: TAMSULOSIN HYDROCHLORIDE
     Indication: PRODUCT USED FOR UNKNOWN INDICATION
     Dosage: (2751CH)?HIDROCLORURO
     Route: 048
     Dates: start: 20200323, end: 20200402
  4. BEMIPARINA SODICA [Concomitant]
     Indication: PRODUCT USED FOR UNKNOWN INDICATION
     Dosage: (2817SO)
     Route: 058
     Dates: start: 20200323, end: 20200402
  5. LOPINAVIR/RITONAVIR [Suspect]
     Active Substance: LOPINAVIR\RITONAVIR
     Indication: COVID-19
     Route: 048
     Dates: start: 20200323, end: 20200326
  6. HIDROXICLOROQUINA SULFATO [Suspect]
     Active Substance: HYDROXYCHLOROQUINE SULFATE
     Indication: COVID-19
     Dosage: (2143SU)
     Route: 048
     Dates: start: 20200323, end: 20200326

REACTIONS (2)
  - Off label use [Unknown]
  - Long QT syndrome [Recovered/Resolved]

NARRATIVE: CASE EVENT DATE: 20200323
